FAERS Safety Report 20638284 (Version 2)
Quarter: 2023Q2

REPORT INFORMATION
  Report Type: Other
  Country: US (occurrence: None)
  Receive Date: 20220325
  Receipt Date: 20230509
  Transmission Date: 20230721
  Serious: Yes (Other)
  Sender: FDA-Public Use
  Company Number: US-ROCHE-1773527

PATIENT
  Age: 74 Year
  Sex: Female
  Weight: 78.9 kg

DRUGS (20)
  1. RITUXAN [Suspect]
     Active Substance: RITUXIMAB
     Indication: Rheumatoid arthritis
     Dosage: 500 MG ON WEEK 0 AND WEEK 2
     Route: 042
     Dates: start: 20150622
  2. RITUXAN [Suspect]
     Active Substance: RITUXIMAB
     Dosage: DAY 1 AND DAY 15
     Route: 042
  3. RITUXAN [Suspect]
     Active Substance: RITUXIMAB
     Dosage: WEEK 0 AND WEEK 2
     Route: 042
     Dates: start: 20160620
  4. RITUXAN [Suspect]
     Active Substance: RITUXIMAB
     Dosage: WEEK 0 AND WEEK 2
     Route: 042
     Dates: start: 20180330
  5. DILTIAZEM [Concomitant]
     Active Substance: DILTIAZEM
     Dosage: TAKE 1CAP DAILY
     Route: 048
  6. MEDROL [Concomitant]
     Active Substance: METHYLPREDNISOLONE
     Dosage: TAKE 1TAB PO DAILY
     Route: 048
  7. ALEVE [Concomitant]
     Active Substance: NAPROXEN SODIUM
     Route: 048
  8. PRILOSEC [Concomitant]
     Active Substance: OMEPRAZOLE MAGNESIUM
     Dosage: TAKE BY MOUTH
     Route: 048
  9. ULTRAM [Concomitant]
     Active Substance: TRAMADOL HYDROCHLORIDE
     Indication: Pain
     Dosage: AS NEEDED
     Route: 048
  10. FORTAMET [Concomitant]
     Active Substance: METFORMIN HYDROCHLORIDE
     Dosage: TAKE BY MOUTH
     Route: 048
  11. UREACIN [Concomitant]
     Indication: Dry skin
     Dosage: APPLY TO DRY SKIN BID
     Route: 061
  12. PERCOCET [Concomitant]
     Active Substance: ACETAMINOPHEN\OXYCODONE HYDROCHLORIDE
     Indication: Pain
     Dosage: TAKE 2TABS EVERY 6HR AS NEEDED
     Route: 048
  13. AMARYL [Concomitant]
     Active Substance: GLIMEPIRIDE
     Dosage: TAKE BY MOUTH
     Route: 048
  14. ASPIRIN [Concomitant]
     Active Substance: ASPIRIN
  15. METFORMIN [Concomitant]
     Active Substance: METFORMIN HYDROCHLORIDE
  16. CARDIZEM [Concomitant]
     Active Substance: DILTIAZEM HYDROCHLORIDE
  17. EPINEPHRINE [Concomitant]
     Active Substance: EPINEPHRINE
  18. GLUCOPHAGE XR [Concomitant]
     Active Substance: METFORMIN HYDROCHLORIDE
  19. VITAMIN D3 [Concomitant]
     Active Substance: CHOLECALCIFEROL
  20. PRINIVIL [Concomitant]
     Active Substance: LISINOPRIL

REACTIONS (15)
  - Seizure [Unknown]
  - Tremor [Recovered/Resolved]
  - Fatigue [Unknown]
  - Diarrhoea [Unknown]
  - Rheumatoid arthritis [Unknown]
  - Rash [Unknown]
  - Dyspnoea [Unknown]
  - Weight decreased [Unknown]
  - Decreased appetite [Unknown]
  - Dyspepsia [Unknown]
  - Contusion [Unknown]
  - Rheumatoid arthritis [Unknown]
  - Pain [Unknown]
  - Skin cancer [Unknown]
  - Influenza [Unknown]

NARRATIVE: CASE EVENT DATE: 20150901
